FAERS Safety Report 6138476-4 (Version None)
Quarter: 2009Q1

REPORT INFORMATION
  Report Type: 
  Country: None (occurrence: None)
  Receive Date: 20090331
  Receipt Date: 20090326
  Transmission Date: 20090719
  Serious: Yes (Life-Threatening, Hospitalization, Disabling, Other)
  Sender: FDA-Public Use
  Company Number: GB-BRISTOL-MYERS SQUIBB COMPANY-13844618

PATIENT
  Age: 9 Year
  Sex: Male
  Weight: 32 kg

DRUGS (12)
  1. SUSTIVA [Suspect]
     Indication: HIV INFECTION
     Route: 048
     Dates: start: 20070302, end: 20070701
  2. DIDANOSINE [Suspect]
     Indication: ANTIRETROVIRAL THERAPY
     Route: 065
  3. ZIDOVUDINE [Suspect]
     Indication: ANTIRETROVIRAL THERAPY
     Route: 048
     Dates: start: 20070330, end: 20070701
  4. LAMIVUDINE [Suspect]
     Indication: ANTIRETROVIRAL THERAPY
     Route: 048
     Dates: start: 20070330, end: 20070701
  5. KIVEXA [Suspect]
     Indication: ANTIRETROVIRAL THERAPY
  6. ABACAVIR [Suspect]
     Indication: ANTIRETROVIRAL THERAPY
     Route: 065
  7. CO-TRIMOXAZOLE [Suspect]
     Indication: ANTIRETROVIRAL THERAPY
     Route: 065
  8. MYCOPHENOLATE MOFETIL [Suspect]
     Indication: PROPHYLAXIS AGAINST TRANSPLANT REJECTION
     Route: 065
  9. NELFINAVIR [Suspect]
     Indication: ANTIRETROVIRAL THERAPY
     Route: 065
  10. PREDNISOLONE [Suspect]
     Indication: PROPHYLAXIS AGAINST TRANSPLANT REJECTION
     Route: 065
  11. RALTEGRAVIR [Suspect]
     Indication: PROPHYLAXIS AGAINST TRANSPLANT REJECTION
     Route: 065
  12. RAPAMUNE [Suspect]
     Indication: PROPHYLAXIS AGAINST TRANSPLANT REJECTION
     Route: 065

REACTIONS (24)
  - ACUTE HEPATIC FAILURE [None]
  - CACHEXIA [None]
  - CHOLESTASIS [None]
  - DISEASE RECURRENCE [None]
  - DRUG INEFFECTIVE [None]
  - DRUG TOXICITY [None]
  - GRAFT DYSFUNCTION [None]
  - HEPATIC ENCEPHALOPATHY [None]
  - HEPATIC FUNCTION ABNORMAL [None]
  - HIV INFECTION [None]
  - HYPERLIPIDAEMIA [None]
  - HYPERTENSION [None]
  - JAUNDICE [None]
  - LIVER DISORDER [None]
  - LIVER FUNCTION TEST ABNORMAL [None]
  - LIVER TRANSPLANT [None]
  - LYMPHADENOPATHY [None]
  - MYOPATHY [None]
  - OCULAR ICTERUS [None]
  - PHARYNGITIS [None]
  - RASH [None]
  - RENAL IMPAIRMENT [None]
  - TRANSPLANT REJECTION [None]
  - URINE COLOUR ABNORMAL [None]
